FAERS Safety Report 18433345 (Version 1)
Quarter: 2020Q4

REPORT INFORMATION
  Report Type: Spontaneous
  Country: US (occurrence: US)
  Receive Date: 20201027
  Receipt Date: 20201027
  Transmission Date: 20210114
  Serious: No
  Sender: FDA-Public Use
  Company Number: US-ASTRAZENECA-2020SF32183

PATIENT
  Age: 20168 Day
  Sex: Male
  Weight: 102.1 kg

DRUGS (1)
  1. BYDUREON BCISE [Suspect]
     Active Substance: EXENATIDE
     Indication: DIABETES MELLITUS
     Route: 058
     Dates: start: 202009

REACTIONS (4)
  - Weight decreased [Unknown]
  - Product dose omission issue [Unknown]
  - Device leakage [Unknown]
  - Body height decreased [Unknown]

NARRATIVE: CASE EVENT DATE: 20201006
